FAERS Safety Report 6551296-1 (Version None)
Quarter: 2010Q1

REPORT INFORMATION
  Report Type: 
  Country: None (occurrence: None)
  Receive Date: 20100126
  Receipt Date: 20100115
  Transmission Date: 20100710
  Serious: Yes (Other)
  Sender: FDA-Public Use
  Company Number: US-RB-001008-10

PATIENT
  Age: 5 Year
  Sex: Male

DRUGS (1)
  1. MUCINEX CHILDREN'S EXPECTORANT/DECONGESTANT [Suspect]
     Route: 048
     Dates: start: 20100109

REACTIONS (1)
  - PSYCHOMOTOR HYPERACTIVITY [None]
